FAERS Safety Report 13986363 (Version 4)
Quarter: 2018Q1

REPORT INFORMATION
  Report Type: Spontaneous
  Country: DE (occurrence: DE)
  Receive Date: 20170919
  Receipt Date: 20180319
  Transmission Date: 20180508
  Serious: Yes (Life-Threatening, Hospitalization)
  Sender: FDA-Public Use
  Company Number: DE-ROCHE-1991248

PATIENT
  Age: 60 Year
  Sex: Female
  Weight: 56 kg

DRUGS (13)
  1. PANTOZOL [Concomitant]
     Active Substance: PANTOPRAZOLE SODIUM
  2. ALPELISIB [Concomitant]
     Active Substance: ALPELISIB
     Indication: BREAST CANCER
  3. FERROGLYCINE SULFATE COMPLEX [Concomitant]
     Active Substance: FERROGLYCINE SULFATE
  4. XYLOCAINE [Concomitant]
     Active Substance: LIDOCAINE HYDROCHLORIDE
  5. VANCOMYCIN [Concomitant]
     Active Substance: VANCOMYCIN
  6. ULCOGANT [Concomitant]
     Active Substance: SUCRALFATE
  7. FULVESTRANT. [Concomitant]
     Active Substance: FULVESTRANT
     Indication: BREAST CANCER
  8. MEROPENEM. [Concomitant]
     Active Substance: MEROPENEM
  9. PARACETAMOL [Concomitant]
     Active Substance: ACETAMINOPHEN
     Route: 048
  10. XELODA [Suspect]
     Active Substance: CAPECITABINE
     Indication: BREAST CANCER
     Dosage: MOST RECENT DOSE OF CAPECITABINE: 28/APR/2016
     Route: 048
     Dates: start: 20160418, end: 20160429
  11. ALPELISIB [Concomitant]
     Active Substance: ALPELISIB
     Indication: BREAST CANCER
     Dosage: THERAPY INTERRUPTED ON 13/APR/2016 AND PERMANANTLY ENDED ON 25/MAY/2016
     Route: 048
     Dates: start: 20151029, end: 20160413
  12. FULVESTRANT. [Concomitant]
     Active Substance: FULVESTRANT
     Indication: BREAST CANCER
     Dosage: INTERRUPTED ON 17/MAR/2016 AND PERMANANTLY ENDED ON 25/MAY/2016
     Route: 030
     Dates: start: 20151029, end: 20160525
  13. XELODA [Suspect]
     Active Substance: CAPECITABINE
     Indication: BREAST CANCER

REACTIONS (16)
  - Electrolyte imbalance [Unknown]
  - Pancytopenia [Recovered/Resolved]
  - Gastrointestinal haemorrhage [Recovered/Resolved with Sequelae]
  - Gastritis [Unknown]
  - Disseminated intravascular coagulation [Recovered/Resolved with Sequelae]
  - Pleural effusion [Unknown]
  - Ketonuria [Unknown]
  - Haemorrhagic anaemia [Recovered/Resolved with Sequelae]
  - Thrombophlebitis superficial [Unknown]
  - General physical health deterioration [Unknown]
  - Diarrhoea [Recovering/Resolving]
  - Thrombocytopenia [Not Recovered/Not Resolved]
  - Febrile neutropenia [Recovered/Resolved]
  - Colitis [Recovered/Resolved with Sequelae]
  - Leukopenia [Not Recovered/Not Resolved]
  - Oesophagitis [Unknown]

NARRATIVE: CASE EVENT DATE: 20160426
